FAERS Safety Report 5957162-4 (Version None)
Quarter: 2008Q4

REPORT INFORMATION
  Report Type: 
  Country: None (occurrence: None)
  Receive Date: 20081118
  Receipt Date: 20081106
  Transmission Date: 20090506
  Serious: Yes (Hospitalization)
  Sender: FDA-Public Use
  Company Number: FR-PFIZER INC-2008094986

PATIENT
  Sex: Male
  Weight: 98 kg

DRUGS (4)
  1. SU-011,248 [Suspect]
     Indication: PROSTATE CANCER
     Dosage: DAILY DOSE:37.5MG
     Route: 048
     Dates: start: 20080704, end: 20081029
  2. TAHOR [Concomitant]
     Route: 048
     Dates: start: 19980101
  3. AMLOD [Concomitant]
     Route: 048
     Dates: start: 20080814
  4. LEVOTHYROX [Concomitant]
     Route: 048
     Dates: start: 20050311

REACTIONS (1)
  - HAEMOGLOBINURIA [None]
